FAERS Safety Report 10731502 (Version 2)
Quarter: 2015Q1

REPORT INFORMATION
  Report Type: Spontaneous
  Country: NZ (occurrence: NZ)
  Receive Date: 20150123
  Receipt Date: 20150203
  Transmission Date: 20150721
  Serious: Yes (Death)
  Sender: FDA-Public Use
  Company Number: NZ-009507513-1501NZL006885

PATIENT
  Age: 79 Year
  Sex: Female

DRUGS (5)
  1. ASPIRIN. [Suspect]
     Active Substance: ASPIRIN
     Dosage: 100 MG, UNK (START DATE: LONG TERM)
     Route: 048
     Dates: end: 201211
  2. SIMVASTATIN. [Suspect]
     Active Substance: SIMVASTATIN
     Dosage: 40 MG, UNK
     Route: 048
     Dates: start: 20100823, end: 20121126
  3. KETOCONAZOLE. [Interacting]
     Active Substance: KETOCONAZOLE
     Dosage: 400 MG, UNK
     Route: 048
     Dates: start: 20121031, end: 20121124
  4. TERBINAFINE [Suspect]
     Active Substance: TERBINAFINE
     Dosage: ROUTE ^TO^
     Dates: start: 20121031, end: 201211
  5. METOPROLOL [Suspect]
     Active Substance: METOPROLOL
     Dosage: 47.5 MG, UNK (START DATE: LONG TERM)
     Route: 048
     Dates: end: 201211

REACTIONS (4)
  - Medication error [Fatal]
  - Drug interaction [Fatal]
  - Rhabdomyolysis [Fatal]
  - Acute kidney injury [Fatal]

NARRATIVE: CASE EVENT DATE: 201212
